FAERS Safety Report 20602690 (Version 1)
Quarter: 2022Q1

REPORT INFORMATION
  Report Type: Spontaneous
  Country: US (occurrence: US)
  Receive Date: 20220316
  Receipt Date: 20220316
  Transmission Date: 20220424
  Serious: No
  Sender: FDA-Public Use
  Company Number: US-GLAXOSMITHKLINE-USCH2022010299

PATIENT
  Age: 67 Year
  Sex: Male

DRUGS (1)
  1. ADVIL LIQUI-GELS [Suspect]
     Active Substance: IBUPROFEN
     Indication: Product used for unknown indication
     Dosage: UNK
     Dates: start: 20220312, end: 20220312

REACTIONS (3)
  - Vomiting [Unknown]
  - Throat irritation [Unknown]
  - Throat tightness [Unknown]

NARRATIVE: CASE EVENT DATE: 20220312
